FAERS Safety Report 23124443 (Version 1)
Quarter: 2023Q4

REPORT INFORMATION
  Report Type: Spontaneous
  Country: US (occurrence: None)
  Receive Date: 20231028
  Receipt Date: 20231028
  Transmission Date: 20240109
  Serious: Yes (Hospitalization)
  Sender: FDA-Public Use
  Company Number: None

PATIENT
  Age: 38 Year
  Sex: Female
  Weight: 101.25 kg

DRUGS (1)
  1. SAXENDA [Suspect]
     Active Substance: LIRAGLUTIDE

REACTIONS (5)
  - Haematemesis [None]
  - Tremor [None]
  - Asthenia [None]
  - Heart rate increased [None]
  - Gait inability [None]

NARRATIVE: CASE EVENT DATE: 20230118
